FAERS Safety Report 8431266-9 (Version None)
Quarter: 2012Q2

REPORT INFORMATION
  Report Type: 
  Country: None (occurrence: None)
  Receive Date: 20120613
  Receipt Date: 20120601
  Transmission Date: 20120825
  Serious: Yes (Hospitalization)
  Sender: FDA-Public Use
  Company Number: CA-BRISTOL-MYERS SQUIBB COMPANY-16660318

PATIENT
  Age: 37 Year
  Sex: Female

DRUGS (12)
  1. METHOTREXATE [Concomitant]
  2. PLAQUENIL [Concomitant]
  3. NORVASC [Concomitant]
  4. FOLIC ACID [Concomitant]
  5. SYNTHROID [Concomitant]
  6. PROZAC [Concomitant]
  7. AMITRIPTYLINE HCL [Concomitant]
  8. NOVO-GESIC FORTE [Concomitant]
  9. ORENCIA [Suspect]
     Indication: RHEUMATOID ARTHRITIS
     Dosage: LAST INF ON:3MAY12 NO OF INF:30
     Route: 042
     Dates: start: 20091119
  10. VITAMIN B-12 [Concomitant]
  11. LITHIUM [Suspect]
  12. SEROQUEL [Concomitant]

REACTIONS (1)
  - TOXICITY TO VARIOUS AGENTS [None]
